FAERS Safety Report 5324233-5 (Version None)
Quarter: 2007Q2

REPORT INFORMATION
  Report Type: 
  Country: None (occurrence: None)
  Receive Date: 20070507
  Receipt Date: 20070430
  Transmission Date: 20071010
  Serious: Yes (Hospitalization)
  Sender: FDA-Public Use
  Company Number: UKP07000071

PATIENT
  Age: 88 Year
  Sex: Female

DRUGS (1)
  1. ACTONEL [Suspect]
     Dosage: 35MG, 1 WEEK; ORAL
     Route: 048

REACTIONS (2)
  - DEEP VEIN THROMBOSIS [None]
  - RENAL FAILURE [None]
